FAERS Safety Report 23133577 (Version 1)
Quarter: 2023Q4

REPORT INFORMATION
  Report Type: Spontaneous
  Country: US (occurrence: None)
  Receive Date: 20231031
  Receipt Date: 20231031
  Transmission Date: 20240109
  Serious: Yes (Disabling)
  Sender: FDA-Public Use
  Company Number: None

PATIENT
  Age: 58 Year
  Sex: Male
  Weight: 78.75 kg

DRUGS (6)
  1. PAXLOVID [Suspect]
     Active Substance: NIRMATRELVIR\RITONAVIR
     Indication: SARS-CoV-2 test positive
     Dates: start: 20230318, end: 20230323
  2. DIMETHYL SULFONE [Concomitant]
     Active Substance: DIMETHYL SULFONE
  3. HERBALS\TURMERIC [Concomitant]
     Active Substance: HERBALS\TURMERIC
  4. ARGININE [Concomitant]
     Active Substance: ARGININE
  5. VITAMIN B12 [Concomitant]
     Active Substance: CYANOCOBALAMIN
  6. hemp protein [Concomitant]

REACTIONS (2)
  - Dysgeusia [None]
  - Muscular weakness [None]

NARRATIVE: CASE EVENT DATE: 20230318
